FAERS Safety Report 13378014 (Version 1)
Quarter: 2017Q1

REPORT INFORMATION
  Report Type: Spontaneous
  Country: PE (occurrence: PE)
  Receive Date: 20170328
  Receipt Date: 20170328
  Transmission Date: 20170429
  Serious: Yes (Other)
  Sender: FDA-Public Use
  Company Number: PE-PFIZER INC-2017128318

PATIENT
  Age: 82 Year
  Sex: Female

DRUGS (1)
  1. ACCUPRIL [Suspect]
     Active Substance: QUINAPRIL HYDROCHLORIDE
     Dosage: 40 MG, UNK
     Route: 048

REACTIONS (3)
  - Fall [Recovered/Resolved]
  - Nervousness [Unknown]
  - Fracture [Recovered/Resolved]
